FAERS Safety Report 24185777 (Version 2)
Quarter: 2025Q2

REPORT INFORMATION
  Report Type: Spontaneous
  Country: JP (occurrence: JP)
  Receive Date: 20240807
  Receipt Date: 20250402
  Transmission Date: 20250717
  Serious: Yes (Hospitalization)
  Sender: EISAI
  Company Number: JP-Eisai-202302361_LEN-HCC_P_1

PATIENT
  Age: 66 Year
  Sex: Male
  Weight: 85 kg

DRUGS (6)
  1. LENVATINIB [Suspect]
     Active Substance: LENVATINIB
     Indication: Hepatocellular carcinoma
  2. OXYCODONE [Concomitant]
     Active Substance: OXYCODONE
  3. VONOPRAZAN [Concomitant]
     Active Substance: VONOPRAZAN
  4. POLAPREZINC [Concomitant]
     Active Substance: POLAPREZINC
  5. PIOGLITAZONE [Concomitant]
     Active Substance: PIOGLITAZONE
  6. MIROGABALIN [Concomitant]
     Active Substance: MIROGABALIN

REACTIONS (1)
  - Fournier^s gangrene [Recovering/Resolving]
